FAERS Safety Report 8575897-4 (Version None)
Quarter: 2012Q3

REPORT INFORMATION
  Report Type: 
  Country: None (occurrence: None)
  Receive Date: 20120807
  Receipt Date: 20120802
  Transmission Date: 20120928
  Serious: Yes (Death)
  Sender: FDA-Public Use
  Company Number: US-CELGENEUS-163-21880-12080422

PATIENT
  Sex: Male

DRUGS (13)
  1. OMEPRAZOLE [Concomitant]
     Route: 065
  2. VELCADE [Concomitant]
     Route: 065
  3. REVLIMID [Suspect]
     Indication: MULTIPLE MYELOMA
     Dosage: 25 MILLIGRAM
     Route: 048
     Dates: start: 20120101, end: 20120101
  4. TRIAMTERENE AND HYDROCHLOROTHIAZIDE [Concomitant]
     Route: 065
  5. ACYCLOVIR [Concomitant]
     Route: 065
  6. AREDIA [Concomitant]
     Route: 065
  7. NEXAVAR [Concomitant]
     Route: 065
  8. DEXAMETHASONE [Concomitant]
     Route: 065
  9. LORAZEPAM [Concomitant]
     Route: 065
  10. REVLIMID [Suspect]
     Dosage: 5 MILLIGRAM
     Route: 048
     Dates: start: 20120101
  11. ACETAMINOPHEN [Concomitant]
     Route: 065
  12. NEUPOGEN [Concomitant]
     Route: 065
  13. SIMVASTATIN [Concomitant]
     Route: 065

REACTIONS (1)
  - DEATH [None]
